FAERS Safety Report 6771159-6 (Version None)
Quarter: 2010Q2

REPORT INFORMATION
  Report Type: 
  Country: None (occurrence: None)
  Receive Date: 20100616
  Receipt Date: 20100608
  Transmission Date: 20101027
  Serious: Yes (Death)
  Sender: FDA-Public Use
  Company Number: US-CEPHALON-US023806

PATIENT
  Sex: Female
  Weight: 95 kg

DRUGS (7)
  1. ACTIQ [Suspect]
     Indication: ABDOMINAL PAIN
     Route: 002
     Dates: start: 20061219
  2. ACTIQ [Suspect]
     Indication: NEUROPATHY PERIPHERAL
  3. PROZAC [Suspect]
     Indication: DEPRESSION
     Route: 048
     Dates: start: 20080506
  4. MORPHINE SULFATE [Concomitant]
     Indication: ABDOMINAL PAIN
     Route: 048
  5. REQUIP [Concomitant]
     Indication: RESTLESS LEGS SYNDROME
     Route: 048
     Dates: start: 20080605
  6. PHENERGAN [Concomitant]
     Indication: NAUSEA
     Route: 048
     Dates: start: 20080409
  7. BACTRIM DS [Concomitant]
     Indication: URINARY TRACT INFECTION
     Route: 048
     Dates: start: 20080601

REACTIONS (5)
  - DRUG INTERACTION [None]
  - DRUG TOXICITY [None]
  - PAIN [None]
  - PULMONARY CONGESTION [None]
  - PULMONARY OEDEMA [None]
